FAERS Safety Report 19711623 (Version 2)
Quarter: 2022Q2

REPORT INFORMATION
  Report Type: Report from Study
  Country: US (occurrence: US)
  Receive Date: 20210816
  Receipt Date: 20220517
  Transmission Date: 20220721
  Serious: No
  Sender: FDA-Public Use
  Company Number: US-TG THERAPEUTICS INC.-TGT002057

PATIENT
  Age: 58 Year
  Sex: Female

DRUGS (3)
  1. UMBRALISIB [Suspect]
     Active Substance: UMBRALISIB
     Indication: B-cell lymphoma
     Dosage: 800 MILLIGRAM, QD
     Route: 048
     Dates: start: 20210522
  2. UMBRALISIB [Suspect]
     Active Substance: UMBRALISIB
     Dosage: 600 MILLIGRAM, QD
     Dates: start: 202110, end: 20220118
  3. PREDNISONE [Suspect]
     Active Substance: PREDNISONE
     Indication: Product used for unknown indication

REACTIONS (17)
  - Muscle fatigue [Unknown]
  - Muscular weakness [Unknown]
  - Pain [Unknown]
  - Tremor [Recovered/Resolved]
  - Adverse drug reaction [Recovered/Resolved]
  - Unevaluable event [Recovered/Resolved]
  - Hepatic enzyme increased [Recovered/Resolved]
  - Headache [Unknown]
  - Vitreous floaters [Unknown]
  - Vision blurred [Unknown]
  - Hunger [Unknown]
  - Initial insomnia [Recovered/Resolved]
  - Pain in extremity [Unknown]
  - Fatigue [Unknown]
  - Nausea [Unknown]
  - Back pain [Unknown]
  - Neutrophil count decreased [Unknown]

NARRATIVE: CASE EVENT DATE: 20210522
